FAERS Safety Report 16102103 (Version 3)
Quarter: 2019Q2

REPORT INFORMATION
  Report Type: Spontaneous
  Country: CA (occurrence: CA)
  Receive Date: 20190321
  Receipt Date: 20190415
  Transmission Date: 20190711
  Serious: Yes (Hospitalization)
  Sender: FDA-Public Use
  Company Number: CA-PFIZER INC-2019124551

PATIENT
  Age: 50 Year
  Sex: Female

DRUGS (7)
  1. PREMARIN [Suspect]
     Active Substance: ESTROGENS, CONJUGATED
     Dosage: UNK
     Route: 048
  2. PREDNISONE. [Concomitant]
     Active Substance: PREDNISONE
     Dosage: UNK
     Route: 048
  3. ERTAPENEM. [Concomitant]
     Active Substance: ERTAPENEM SODIUM
     Dosage: 1 G, 1X/DAY
     Route: 042
  4. INFLECTRA [Concomitant]
     Active Substance: INFLIXIMAB-DYYB
     Indication: CROHN^S DISEASE
     Dosage: 500 MG, Q (EVERY) 0, 2, 6 WEEKS, THEN EVERY 8 WEEKS
     Route: 042
     Dates: start: 20190318
  5. PROGESTERONE. [Concomitant]
     Active Substance: PROGESTERONE
     Dosage: UNK
  6. LEVOTHYROXINE. [Concomitant]
     Active Substance: LEVOTHYROXINE
     Dosage: UNK
     Route: 048
  7. IRON [Concomitant]
     Active Substance: IRON
     Dosage: UNK
     Route: 042

REACTIONS (5)
  - Condition aggravated [Unknown]
  - Hypothyroidism [Unknown]
  - Vaginal fistula [Unknown]
  - Vaginal abscess [Unknown]
  - Anaemia [Unknown]
